FAERS Safety Report 6389067-1 (Version None)
Quarter: 2009Q4

REPORT INFORMATION
  Report Type: 
  Country: None (occurrence: None)
  Receive Date: 20091006
  Receipt Date: 20081024
  Transmission Date: 20100525
  Serious: Yes (Other)
  Sender: FDA-Public Use
  Company Number: PHEH2008US11667

PATIENT
  Sex: Female

DRUGS (1)
  1. FEMARA [Suspect]
     Indication: BREAST CANCER
     Dosage: UNK, UNK
     Route: 065

REACTIONS (4)
  - ARTHRITIS [None]
  - NEUROPATHY PERIPHERAL [None]
  - PAIN [None]
  - WEIGHT INCREASED [None]
